FAERS Safety Report 21447293 (Version 1)
Quarter: 2022Q4

REPORT INFORMATION
  Report Type: Spontaneous
  Country: US (occurrence: US)
  Receive Date: 20221012
  Receipt Date: 20221012
  Transmission Date: 20230113
  Serious: Yes (Death, Hospitalization, Other)
  Sender: FDA-Public Use
  Company Number: US-SA-2022SA415125

PATIENT
  Age: 55 Year
  Sex: Female

DRUGS (3)
  1. OXALIPLATIN [Suspect]
     Active Substance: OXALIPLATIN
     Dosage: UNK UNK, QCY
  2. FLUOROURACIL [Suspect]
     Active Substance: FLUOROURACIL
     Indication: Cholangiocarcinoma
     Dosage: UNK UNK, QCY
  3. LEUCOVORIN [Suspect]
     Active Substance: LEUCOVORIN
     Indication: Cholangiocarcinoma
     Dosage: UNK UNK, QCY

REACTIONS (9)
  - Pneumonitis [Fatal]
  - Pulmonary toxicity [Fatal]
  - Lymphadenopathy mediastinal [Fatal]
  - Hilar lymphadenopathy [Fatal]
  - Lung consolidation [Fatal]
  - Pneumothorax [Fatal]
  - Lung opacity [Fatal]
  - Pneumonia [Fatal]
  - Respiratory failure [Fatal]
